FAERS Safety Report 5307878-8 (Version None)
Quarter: 2007Q2

REPORT INFORMATION
  Report Type: 
  Country: None (occurrence: None)
  Receive Date: 20070420
  Receipt Date: 20070411
  Transmission Date: 20071010
  Serious: Yes (Disabling, Other)
  Sender: FDA-Public Use
  Company Number: 2007-01820

PATIENT
  Age: 63 Year
  Sex: Male

DRUGS (2)
  1. HYDROMORPHONE HYDROCHLORIDE [Suspect]
     Indication: BACK PAIN
     Dosage: INTRATHECAL DRUG INFUSION SYSTEM, INTRATHECAL
     Route: 037
     Dates: start: 20020401, end: 20020401
  2. BUPIVACAINE [Suspect]
     Indication: BACK PAIN
     Dosage: INTRATHECAL DRUG INFUSION SYSTEM, INTRATHECAL
     Route: 037
     Dates: start: 20020401, end: 20020401

REACTIONS (7)
  - CATHETER RELATED COMPLICATION [None]
  - DRUG TOXICITY [None]
  - INFUSION SITE MASS [None]
  - MASS [None]
  - MYELOPATHY [None]
  - SPINAL CORD DISORDER [None]
  - WALKING AID USER [None]
